FAERS Safety Report 21314638 (Version 1)
Quarter: 2022Q3

REPORT INFORMATION
  Report Type: Spontaneous
  Country: US (occurrence: US)
  Receive Date: 20220909
  Receipt Date: 20220909
  Transmission Date: 20221026
  Serious: No
  Sender: FDA-Public Use
  Company Number: US-PADAGIS-2022PAD00616

PATIENT

DRUGS (1)
  1. METRONIDAZOLE [Suspect]
     Active Substance: METRONIDAZOLE
     Indication: Infection
     Dosage: TWICE A WEEK FOR 4-6 MONTH
     Route: 067

REACTIONS (3)
  - Prescribed underdose [Unknown]
  - Product use issue [Unknown]
  - Product use in unapproved indication [Unknown]
